FAERS Safety Report 7706305-0 (Version None)
Quarter: 2011Q3

REPORT INFORMATION
  Report Type: 
  Country: None (occurrence: None)
  Receive Date: 20110824
  Receipt Date: 20110819
  Transmission Date: 20111222
  Serious: Yes (Other)
  Sender: FDA-Public Use
  Company Number: JP-EISAI INC-E2020-09509-SPO-JP

PATIENT
  Age: 58 Year
  Sex: Female

DRUGS (4)
  1. ARICEPT [Suspect]
     Indication: DEMENTIA ALZHEIMER'S TYPE
     Route: 048
     Dates: start: 20110603, end: 20110609
  2. BANAN [Concomitant]
     Indication: INFECTION
     Route: 048
     Dates: start: 20110719, end: 20110722
  3. ARICEPT [Suspect]
     Route: 048
     Dates: start: 20110610, end: 20110623
  4. ZYPREXA [Suspect]
     Indication: DELUSION
     Route: 048
     Dates: start: 20110709, end: 20110713

REACTIONS (1)
  - NEUROLEPTIC MALIGNANT SYNDROME [None]
